FAERS Safety Report 4628997-5 (Version None)
Quarter: 2005Q2

REPORT INFORMATION
  Report Type: 
  Country: None (occurrence: None)
  Receive Date: 20050405
  Receipt Date: 20050405
  Transmission Date: 20051028
  Serious: Yes (Hospitalization)
  Sender: FDA-Public Use
  Company Number: None

PATIENT
  Age: 75 Year
  Sex: Male

DRUGS (2)
  1. TEQUIN [Suspect]
     Indication: DIABETES MELLITUS INADEQUATE CONTROL
     Dosage: 400 MG 4 TIMES DAILY ORAL
     Route: 048
     Dates: start: 20050310, end: 20050317
  2. TEQUIN [Suspect]
     Indication: LOCALISED INFECTION
     Dosage: 400 MG 4 TIMES DAILY ORAL
     Route: 048
     Dates: start: 20050310, end: 20050317

REACTIONS (2)
  - BLOOD GLUCOSE DECREASED [None]
  - THERAPEUTIC RESPONSE DECREASED [None]
